FAERS Safety Report 9334703 (Version 1)
Quarter: 2013Q2

REPORT INFORMATION
  Report Type: Spontaneous
  Country: IT (occurrence: IT)
  Receive Date: 20130606
  Receipt Date: 20130606
  Transmission Date: 20140414
  Serious: Yes (Other)
  Sender: FDA-Public Use
  Company Number: IT-PFIZER INC-2013167990

PATIENT
  Age: 5 Year
  Sex: Male

DRUGS (3)
  1. CYTARABINE [Suspect]
     Indication: ACUTE LYMPHOCYTIC LEUKAEMIA
     Dosage: 65 MG, CYCLIC
     Route: 042
     Dates: start: 20130302, end: 20130329
  2. BACTRIM [Concomitant]
  3. MERCAPTOPURINE [Concomitant]

REACTIONS (2)
  - Bronchostenosis [Recovered/Resolved]
  - Cough [Recovered/Resolved]
